FAERS Safety Report 5853876-5 (Version None)
Quarter: 2008Q3

REPORT INFORMATION
  Report Type: 
  Country: None (occurrence: None)
  Receive Date: 20080822
  Receipt Date: 20080821
  Transmission Date: 20090109
  Serious: Yes (Death)
  Sender: FDA-Public Use
  Company Number: A0714739A

PATIENT
  Age: 56 Year
  Sex: Female
  Weight: 97.7 kg

DRUGS (1)
  1. AVANDIA [Suspect]
     Indication: DRUG USE FOR UNKNOWN INDICATION
     Dates: start: 20050101

REACTIONS (2)
  - DEATH [None]
  - MYOCARDIAL INFARCTION [None]
